FAERS Safety Report 17630656 (Version 1)
Quarter: 2020Q2

REPORT INFORMATION
  Report Type: Report from Study
  Country: CO (occurrence: CO)
  Receive Date: 20200406
  Receipt Date: 20200406
  Transmission Date: 20200713
  Serious: Yes (Hospitalization, Other)
  Sender: FDA-Public Use
  Company Number: CO-ASTELLAS-2020US011989

PATIENT
  Age: 28 Year
  Sex: Male
  Weight: 50 kg

DRUGS (12)
  1. RIFAMPICIN [Suspect]
     Active Substance: RIFAMPIN
     Dosage: UNK, UNKNOWN FREQ.
     Route: 065
  2. OMEPRAZOLE. [Concomitant]
     Active Substance: OMEPRAZOLE
     Indication: GASTROINTESTINAL MUCOSAL DISORDER
     Route: 048
  3. ETHAMBUTOL [Suspect]
     Active Substance: ETHAMBUTOL HYDROCHLORIDE
     Indication: TUBERCULOSIS
     Dosage: UNK UNK, UNKNOWN FREQ.
     Route: 065
  4. LOSARTAN. [Concomitant]
     Active Substance: LOSARTAN
     Indication: BLOOD PRESSURE ABNORMAL
     Route: 048
  5. TACROLIMUS. [Suspect]
     Active Substance: TACROLIMUS
     Route: 048
     Dates: start: 20200226
  6. ETHAMBUTOL [Suspect]
     Active Substance: ETHAMBUTOL HYDROCHLORIDE
     Dosage: UNK UNK, UNKNOWN FREQ.
     Route: 065
  7. ISONIAZIDE [Suspect]
     Active Substance: ISONIAZID
     Indication: TUBERCULOSIS
     Dosage: UNK UNK, UNKNOWN FREQ.
     Route: 065
  8. RIFAMPICIN [Suspect]
     Active Substance: RIFAMPIN
     Indication: TUBERCULOSIS
     Dosage: UNK, UNKNOWN FREQ.
     Route: 065
  9. PREDNISOLONE. [Concomitant]
     Active Substance: PREDNISOLONE
     Indication: IMMUNOSUPPRESSION
     Route: 048
  10. TACROLIMUS. [Suspect]
     Active Substance: TACROLIMUS
     Indication: RENAL TRANSPLANT
     Route: 048
     Dates: start: 20110926, end: 20200225
  11. ISONIAZIDE [Suspect]
     Active Substance: ISONIAZID
     Dosage: UNK UNK, UNKNOWN FREQ.
     Route: 065
  12. SIROLIMUS. [Concomitant]
     Active Substance: SIROLIMUS
     Indication: RENAL TRANSPLANT
     Route: 048
     Dates: end: 20200205

REACTIONS (7)
  - Tuberculosis [Recovering/Resolving]
  - Liver injury [Unknown]
  - Hepatic enzyme increased [Recovered/Resolved]
  - Haematochezia [Recovered/Resolved]
  - Pyrexia [Recovered/Resolved]
  - Melaena [Unknown]
  - Secondary immunodeficiency [Unknown]

NARRATIVE: CASE EVENT DATE: 202001
